FAERS Safety Report 24721818 (Version 1)
Quarter: 2024Q4

REPORT INFORMATION
  Report Type: Spontaneous
  Country: US (occurrence: US)
  Receive Date: 20241211
  Receipt Date: 20241211
  Transmission Date: 20250115
  Serious: No
  Sender: BLUEPRINT MEDICINES
  Company Number: US-Blueprint Medicines Corporation-5572

PATIENT
  Age: 63 Year
  Sex: Female

DRUGS (1)
  1. AYVAKIT [Suspect]
     Active Substance: AVAPRITINIB
     Indication: Systemic mastocytosis
     Route: 065
     Dates: start: 20240730

REACTIONS (7)
  - Presyncope [Unknown]
  - Positive airway pressure therapy [Unknown]
  - Periorbital swelling [Unknown]
  - Lacrimation increased [Unknown]
  - Body temperature increased [Unknown]
  - Hyperhidrosis [Unknown]
  - Blood pressure decreased [Unknown]
